FAERS Safety Report 15889266 (Version 1)
Quarter: 2019Q1

REPORT INFORMATION
  Report Type: Not Available
  Country: US (occurrence: US)
  Receive Date: 20190130
  Receipt Date: 20190130
  Transmission Date: 20190417
  Serious: No
  Sender: FDA-Public Use
  Company Number: US-NEUROCRINE BIOSCIENCES INC.-2019NBI00235

PATIENT
  Sex: Female

DRUGS (15)
  1. INGREZZA [Suspect]
     Active Substance: VALBENAZINE
     Indication: TARDIVE DYSKINESIA
     Route: 048
  2. AMLODIPINE [Concomitant]
     Active Substance: AMLODIPINE BESYLATE
  3. LEVOTHYROXINE. [Concomitant]
     Active Substance: LEVOTHYROXINE
  4. TRAZODONE [Concomitant]
     Active Substance: TRAZODONE HYDROCHLORIDE
  5. DILTIAZEM. [Concomitant]
     Active Substance: DILTIAZEM
  6. POTASSIUM CHLORIDE. [Concomitant]
     Active Substance: POTASSIUM CHLORIDE
  7. ELIQUIS [Concomitant]
     Active Substance: APIXABAN
  8. RANITIDINE. [Concomitant]
     Active Substance: RANITIDINE
  9. HYDROCODONE [Concomitant]
     Active Substance: HYDROCODONE
  10. MVI [Concomitant]
     Active Substance: VITAMINS
  11. ROSUVASTATIN. [Concomitant]
     Active Substance: ROSUVASTATIN
  12. BENADRYL [Concomitant]
     Active Substance: DIPHENHYDRAMINE HYDROCHLORIDE
  13. DULOXETINE. [Concomitant]
     Active Substance: DULOXETINE
  14. FUROSEMIDE. [Concomitant]
     Active Substance: FUROSEMIDE
  15. MELATONIN [Concomitant]
     Active Substance: MELATONIN

REACTIONS (2)
  - Dyspnoea [Unknown]
  - Anxiety [Unknown]
